FAERS Safety Report 23048673 (Version 2)
Quarter: 2023Q4

REPORT INFORMATION
  Report Type: Spontaneous
  Country: KR (occurrence: KR)
  Receive Date: 20231010
  Receipt Date: 20231023
  Transmission Date: 20240110
  Serious: No
  Sender: FDA-Public Use
  Company Number: KR-ORGANON-O2310KOR001043

PATIENT
  Age: 60 Year
  Sex: Female

DRUGS (1)
  1. FOSAMAX [Suspect]
     Active Substance: ALENDRONATE SODIUM
     Dosage: TAKES IT EVERY FRIDAY
     Route: 048
     Dates: start: 202306, end: 20231005

REACTIONS (6)
  - Sensation of foreign body [Recovering/Resolving]
  - Dyspnoea [Not Recovered/Not Resolved]
  - Oesophageal irritation [Recovering/Resolving]
  - Myalgia [Recovering/Resolving]
  - Dysphagia [Recovering/Resolving]
  - Wrong technique in product usage process [Unknown]

NARRATIVE: CASE EVENT DATE: 20230101
